FAERS Safety Report 13771133 (Version 1)
Quarter: 2017Q3

REPORT INFORMATION
  Report Type: Spontaneous
  Country: US (occurrence: US)
  Receive Date: 20170720
  Receipt Date: 20170720
  Transmission Date: 20171127
  Serious: Yes (Hospitalization)
  Sender: FDA-Public Use
  Company Number: US-ROCHE-1966100

PATIENT
  Age: 80 Year
  Sex: Male

DRUGS (1)
  1. GAZYVA [Suspect]
     Active Substance: OBINUTUZUMAB
     Indication: CHRONIC LYMPHOCYTIC LEUKAEMIA
     Dosage: NO
     Route: 042
     Dates: start: 201707, end: 201707

REACTIONS (1)
  - Respiratory distress [Unknown]

NARRATIVE: CASE EVENT DATE: 201707
